FAERS Safety Report 8334412-0 (Version None)
Quarter: 2012Q2

REPORT INFORMATION
  Report Type: 
  Country: None (occurrence: None)
  Receive Date: 20120503
  Receipt Date: 20110318
  Transmission Date: 20120825
  Serious: No
  Sender: FDA-Public Use
  Company Number: US-BAUSCH-2011BL001712

PATIENT
  Age: 57 Year
  Sex: Female

DRUGS (3)
  1. GENTEAL PM LUBRICANT EYE OINTMENT [Concomitant]
     Indication: EYE IRRITATION
     Route: 047
     Dates: start: 20110101
  2. LOTEMAX [Suspect]
     Indication: EYE IRRITATION
     Route: 047
     Dates: start: 20110220, end: 20110315
  3. SOOTHE XP [Concomitant]
     Indication: EYE IRRITATION
     Route: 047
     Dates: start: 20100901, end: 20110301

REACTIONS (3)
  - FOREIGN BODY SENSATION IN EYES [None]
  - INSTILLATION SITE PAIN [None]
  - MEDICATION RESIDUE [None]
